FAERS Safety Report 12479851 (Version 1)
Quarter: 2016Q2

REPORT INFORMATION
  Report Type: Spontaneous
  Country: US (occurrence: US)
  Receive Date: 20160620
  Receipt Date: 20160620
  Transmission Date: 20160815
  Serious: No
  Sender: FDA-Public Use
  Company Number: US-ENDO PHARMACEUTICALS INC.-2016-002540

PATIENT
  Sex: Female

DRUGS (1)
  1. TRIAMCINOLONE ACETONIDE CREAM 0.1 [Suspect]
     Active Substance: TRIAMCINOLONE ACETONIDE
     Indication: RASH
     Route: 061
     Dates: end: 201603

REACTIONS (4)
  - Off label use [Recovered/Resolved]
  - Product packaging quantity issue [Recovered/Resolved]
  - Rash [Not Recovered/Not Resolved]
  - Product container issue [Recovered/Resolved]
